FAERS Safety Report 5304344-0 (Version None)
Quarter: 2007Q2

REPORT INFORMATION
  Report Type: 
  Country: None (occurrence: None)
  Receive Date: 20070423
  Receipt Date: 20070419
  Transmission Date: 20071010
  Serious: Yes (Hospitalization, Disabling)
  Sender: FDA-Public Use
  Company Number: CA-BAYER-200712193GDS

PATIENT
  Age: 61 Year
  Sex: Male

DRUGS (1)
  1. NEXAVAR [Suspect]
     Indication: NEOPLASM MALIGNANT
     Route: 048
     Dates: start: 20070402, end: 20070404

REACTIONS (1)
  - METASTASES TO BONE [None]
